FAERS Safety Report 18559128 (Version 1)
Quarter: 2020Q4

REPORT INFORMATION
  Report Type: Spontaneous
  Country: US (occurrence: US)
  Receive Date: 20201127
  Receipt Date: 20201127
  Transmission Date: 20210114
  Serious: No
  Sender: FDA-Public Use
  Company Number: None

PATIENT
  Age: 58 Year
  Sex: Female
  Weight: 47.7 kg

DRUGS (1)
  1. PROLIA [Suspect]
     Active Substance: DENOSUMAB
     Indication: OSTEOPOROSIS
     Dosage: OTHER FREQUENCY:Q 6 MONTHS;?
     Route: 058
     Dates: start: 20201023

REACTIONS (4)
  - Skin infection [None]
  - Pain [None]
  - Arthralgia [None]
  - Urinary tract infection [None]

NARRATIVE: CASE EVENT DATE: 20201125
